FAERS Safety Report 5170022-4 (Version None)
Quarter: 2006Q4

REPORT INFORMATION
  Report Type: 
  Country: None (occurrence: None)
  Receive Date: 20061212
  Receipt Date: 20061024
  Transmission Date: 20070319
  Serious: Yes (Other)
  Sender: FDA-Public Use
  Company Number: 2006AP05778

PATIENT
  Sex: Male

DRUGS (2)
  1. XYLOCAINE [Suspect]
     Route: 065
     Dates: start: 20061020, end: 20061020
  2. ROCEPHIN [Concomitant]
     Route: 030

REACTIONS (5)
  - CYANOSIS [None]
  - DIZZINESS [None]
  - HEART RATE DECREASED [None]
  - HYPOTENSION [None]
  - PAIN IN EXTREMITY [None]
